FAERS Safety Report 10771956 (Version 1)
Quarter: 2015Q1

REPORT INFORMATION
  Report Type: Spontaneous
  Country: FR (occurrence: FR)
  Receive Date: 20150206
  Receipt Date: 20150206
  Transmission Date: 20150721
  Serious: Yes (Hospitalization)
  Sender: FDA-Public Use
  Company Number: FR-ASTRAZENECA-2015SE10607

PATIENT
  Age: 10012 Day
  Sex: Female

DRUGS (1)
  1. XEROQUEL [Suspect]
     Active Substance: QUETIAPINE FUMARATE
     Dosage: 30 TABLETS ONCE OF XEROQUEL SR 50 MG AND 30 DF ONCE OF XEROQUEL SR 300 MG/ONCE/SINGLE ADMINISTRATION
     Route: 048
     Dates: start: 20140920, end: 20140920

REACTIONS (5)
  - Sinus tachycardia [Recovered/Resolved]
  - Shock [Recovered/Resolved]
  - Coma [Recovered/Resolved]
  - Hypotension [Recovered/Resolved]
  - Toxicity to various agents [Recovered/Resolved]

NARRATIVE: CASE EVENT DATE: 20140920
